FAERS Safety Report 20112621 (Version 1)
Quarter: 2021Q4

REPORT INFORMATION
  Report Type: Spontaneous
  Country: CN (occurrence: CN)
  Receive Date: 20211125
  Receipt Date: 20211125
  Transmission Date: 20220304
  Serious: Yes (Hospitalization)
  Sender: FDA-Public Use
  Company Number: CN-BAXTER-2021BAX036827

PATIENT
  Age: 75 Year
  Sex: Male
  Weight: 62 kg

DRUGS (6)
  1. CYCLOPHOSPHAMIDE [Suspect]
     Active Substance: CYCLOPHOSPHAMIDE
     Indication: Non-Hodgkin^s lymphoma
     Dosage: 0.9% SODIUM CHLORIDE INJECTION 100ML + CYCLOPHOSPHAMIDE FOR INJECTION 0.4G, ACCESSORY DRUG QD, D1-D3
     Route: 041
     Dates: start: 20210826, end: 20210828
  2. SODIUM CHLORIDE [Suspect]
     Active Substance: SODIUM CHLORIDE
     Indication: Medication dilution
     Dosage: 0.9% SODIUM CHLORIDE INJECTION 100ML + CYCLOPHOSPHAMIDE FOR INJECTION 0.4G, ACCESSORY DRUG QD, D1-D3
     Route: 041
     Dates: start: 20210826, end: 20210828
  3. SODIUM CHLORIDE [Suspect]
     Active Substance: SODIUM CHLORIDE
     Dosage: 0.9% SODIUM CHLORIDE INJECTION 30ML + VINDESINE SULFATE FOR INJECTION (LYOPHILIZED) 4 MG, INTRAVENOU
     Route: 040
     Dates: start: 20210826, end: 20210826
  4. SODIUM CHLORIDE [Suspect]
     Active Substance: SODIUM CHLORIDE
     Dosage: 0.9% SODIUM CHLORIDE INJECTION 250ML + ETOPOSIDE INJECTION 0.05G, ACCESSORY DRUG QD, D1-D3
     Route: 041
     Dates: start: 20210826, end: 20210828
  5. VINDESINE [Suspect]
     Active Substance: VINDESINE
     Indication: Non-Hodgkin^s lymphoma
     Dosage: LYOPHILIZED?0.9% SODIUM CHLORIDE INJECTION 30ML + VINDESINE SULFATE FOR INJECTION (LYOPHILIZED) 4 MG
     Route: 040
     Dates: start: 20210826, end: 20210826
  6. ETOPOSIDE [Suspect]
     Active Substance: ETOPOSIDE
     Indication: Non-Hodgkin^s lymphoma
     Dosage: 0.9% SODIUM CHLORIDE INJECTION 250ML + ETOPOSIDE INJECTION 0.05G, ACCESSORY DRUG QD, D1-D3
     Route: 041
     Dates: start: 20210826, end: 20210828

REACTIONS (1)
  - White blood cell count decreased [Recovering/Resolving]

NARRATIVE: CASE EVENT DATE: 20210915
